FAERS Safety Report 8464481-9 (Version None)
Quarter: 2012Q2

REPORT INFORMATION
  Report Type: 
  Country: None (occurrence: None)
  Receive Date: 20120626
  Receipt Date: 20120615
  Transmission Date: 20120825
  Serious: No
  Sender: FDA-Public Use
  Company Number: US-B.I. PHARMACEUTICALS,INC./RIDGEFIELD-2012-BP-07175BP

PATIENT
  Sex: Female

DRUGS (13)
  1. HYDROCODONE [Concomitant]
     Indication: PAIN
  2. OMEPRAZOLE [Concomitant]
     Indication: GASTROOESOPHAGEAL REFLUX DISEASE
  3. MICARDIS HCT [Suspect]
     Indication: HYPERTENSION
     Route: 048
     Dates: start: 20040101
  4. GLUCOSAMINE [Concomitant]
     Indication: PAIN
  5. ATENOLOL [Concomitant]
     Indication: CARDIAC DISORDER
  6. FISH OIL [Concomitant]
     Indication: LIPIDS INCREASED
  7. LIPITOR [Concomitant]
     Indication: LIPIDS INCREASED
  8. MIRTAZAPINE [Concomitant]
     Indication: DEPRESSION
  9. AMLODIPINE [Concomitant]
     Indication: HYPERTENSION
  10. ASPIRIN [Concomitant]
     Indication: CARDIAC DISORDER
  11. CITALOPRAM HYDROBROMIDE [Concomitant]
     Indication: DEPRESSION
  12. DICLOFENAC SODIUM [Concomitant]
     Indication: PAIN
  13. TIMOLOL MALEATE [Concomitant]

REACTIONS (2)
  - SENSATION OF HEAVINESS [None]
  - POLLAKIURIA [None]
